FAERS Safety Report 23057378 (Version 2)
Quarter: 2023Q4

REPORT INFORMATION
  Report Type: Spontaneous
  Country: US (occurrence: US)
  Receive Date: 20231012
  Receipt Date: 20231023
  Transmission Date: 20240110
  Serious: Yes (Life-Threatening, Hospitalization)
  Sender: FDA-Public Use
  Company Number: US-TEVA-2023-US-2933095

PATIENT
  Age: 29 Year
  Sex: Female

DRUGS (1)
  1. BUPROPION [Suspect]
     Active Substance: BUPROPION
     Indication: Product used for unknown indication
     Dosage: 8 G
     Route: 048

REACTIONS (5)
  - Hypotension [Recovering/Resolving]
  - Status epilepticus [Unknown]
  - Ventricular tachycardia [Recovering/Resolving]
  - Cardiotoxicity [Recovering/Resolving]
  - Overdose [Unknown]
